FAERS Safety Report 7817544-2 (Version None)
Quarter: 2011Q4

REPORT INFORMATION
  Report Type: 
  Country: None (occurrence: None)
  Receive Date: 20111017
  Receipt Date: 20111005
  Transmission Date: 20120403
  Serious: Yes (Life-Threatening)
  Sender: FDA-Public Use
  Company Number: JM-BAYER-2011-099263

PATIENT
  Age: 24 Year
  Sex: Female

DRUGS (1)
  1. YASMIN [Suspect]
     Route: 048

REACTIONS (2)
  - CHEST DISCOMFORT [None]
  - DYSPNOEA [None]
